FAERS Safety Report 6355093-1 (Version None)
Quarter: 2009Q3

REPORT INFORMATION
  Report Type: 
  Country: None (occurrence: None)
  Receive Date: 20090914
  Receipt Date: 20090908
  Transmission Date: 20100115
  Serious: Yes (Death)
  Sender: FDA-Public Use
  Company Number: JP-SANOFI-SYNTHELABO-F01200801966

PATIENT
  Sex: Female
  Weight: 46 kg

DRUGS (13)
  1. METHYCOBAL [Concomitant]
     Route: 048
     Dates: start: 20070625, end: 20071130
  2. SEDIEL [Concomitant]
     Dosage: 10 MG
     Route: 048
     Dates: start: 20070515, end: 20071130
  3. NAUZELIN [Concomitant]
     Dosage: 10 MG
     Route: 048
     Dates: start: 20070903, end: 20071130
  4. PAXIL [Concomitant]
     Dosage: 10 MG
     Route: 048
     Dates: start: 20070903, end: 20071130
  5. MYSLEE [Concomitant]
     Dosage: 10 MG
     Route: 048
     Dates: start: 20070416, end: 20071130
  6. URSO 250 [Concomitant]
     Route: 048
     Dates: start: 20070416, end: 20071130
  7. DOGMATYL [Concomitant]
     Route: 048
     Dates: start: 20070501, end: 20071130
  8. SELECTOL [Concomitant]
     Indication: HYPERTENSION
     Route: 048
     Dates: start: 20071106, end: 20071130
  9. TANATRIL [Concomitant]
     Indication: HYPERTENSION
     Dosage: 5 MG
     Route: 048
     Dates: start: 20071106, end: 20071130
  10. ARTIST [Concomitant]
     Indication: HYPERTENSION
     Dosage: 2.5 MG
     Route: 048
     Dates: start: 20071106, end: 20071130
  11. OLMETEC [Concomitant]
     Indication: HYPERTENSION
     Dosage: 20 MG
     Route: 048
     Dates: start: 20071106, end: 20071130
  12. ADALAT [Concomitant]
     Indication: HYPERTENSION
     Route: 048
     Dates: start: 20071106, end: 20071130
  13. CLOPIDOGREL [Suspect]
     Indication: CEREBRAL INFARCTION
     Dosage: 50 MG
     Route: 048
     Dates: start: 20071001, end: 20071130

REACTIONS (1)
  - DEATH [None]
